FAERS Safety Report 9770438 (Version 2)
Quarter: 2014Q1

REPORT INFORMATION
  Report Type: Report from Study
  Country: DE (occurrence: DE)
  Receive Date: 20131218
  Receipt Date: 20140210
  Transmission Date: 20141002
  Serious: Yes (Hospitalization)
  Sender: FDA-Public Use
  Company Number: DE-PFIZER INC-2013361566

PATIENT
  Age: 61 Year
  Sex: Female
  Weight: 92 kg

DRUGS (7)
  1. CISPLATIN [Suspect]
     Indication: NON-SMALL CELL LUNG CANCER
     Dosage: 146 MG, (75 MG/M2)
     Dates: start: 20130913, end: 20131115
  2. GEMCITABINE HYDROCHLORIDE [Suspect]
     Indication: NON-SMALL CELL LUNG CANCER
     Dosage: 2340 MG, (1200 MG/M2)
     Dates: start: 20130913, end: 20131115
  3. KEVATRIL [Concomitant]
     Route: 042
  4. MCP [Concomitant]
     Indication: NAUSEA
     Dosage: 90 MG, UNK
     Route: 048
  5. TIOTROPIUM BROMIDE [Concomitant]
     Indication: CHRONIC OBSTRUCTIVE PULMONARY DISEASE
  6. PANTOPRAZOLE [Concomitant]
     Indication: PROPHYLAXIS
     Dosage: UNK
     Dates: start: 20130913
  7. TANTA ACETYLSALIC ACID WITH CODEIN [Concomitant]
     Indication: PROPHYLAXIS

REACTIONS (1)
  - Infection [Recovered/Resolved]
